FAERS Safety Report 20373691 (Version 7)
Quarter: 2023Q1

REPORT INFORMATION
  Report Type: Report from Study
  Country: KR (occurrence: KR)
  Receive Date: 20220125
  Receipt Date: 20230328
  Transmission Date: 20230418
  Serious: Yes (Hospitalization)
  Sender: FDA-Public Use
  Company Number: KR-ABBVIE-22K-090-4245248-00

PATIENT
  Age: 88 Year
  Sex: Male
  Weight: 60 kg

DRUGS (60)
  1. VENCLEXTA [Suspect]
     Active Substance: VENETOCLAX
     Indication: Chronic lymphocytic leukaemia
     Dosage: 20 MILLIGRAM
     Route: 048
     Dates: start: 20211127, end: 20211203
  2. VENCLEXTA [Suspect]
     Active Substance: VENETOCLAX
     Indication: Chronic lymphocytic leukaemia
     Dosage: 50 MILLIGRAM
     Route: 048
     Dates: start: 20211204, end: 20211206
  3. VENCLEXTA [Suspect]
     Active Substance: VENETOCLAX
     Indication: Chronic lymphocytic leukaemia
     Dosage: 100 MILLIGRAM
     Route: 048
     Dates: start: 20211207, end: 20211216
  4. VENCLEXTA [Suspect]
     Active Substance: VENETOCLAX
     Indication: Chronic lymphocytic leukaemia
     Dosage: 50 MILLIGRAM
     Route: 048
     Dates: start: 20211217, end: 20211231
  5. VENCLEXTA [Suspect]
     Active Substance: VENETOCLAX
     Indication: Chronic lymphocytic leukaemia
     Dosage: 30 MILLIGRAM
     Route: 048
     Dates: start: 20220113, end: 20220120
  6. VENCLEXTA [Suspect]
     Active Substance: VENETOCLAX
     Indication: Chronic lymphocytic leukaemia
     Dosage: 200 MILLIGRAM
     Route: 048
     Dates: start: 20220128, end: 20220203
  7. VENCLEXTA [Suspect]
     Active Substance: VENETOCLAX
     Indication: Chronic lymphocytic leukaemia
     Dosage: 50 MILLIGRAM
     Route: 048
     Dates: start: 20220121, end: 20220123
  8. VENCLEXTA [Suspect]
     Active Substance: VENETOCLAX
     Indication: Chronic lymphocytic leukaemia
     Dosage: 100 MILLIGRAM
     Route: 048
     Dates: start: 20220124, end: 20220127
  9. VENCLEXTA [Suspect]
     Active Substance: VENETOCLAX
     Indication: Chronic lymphocytic leukaemia
     Dosage: 400 MILLIGRAM
     Route: 048
     Dates: start: 20220210, end: 20220307
  10. VENCLEXTA [Suspect]
     Active Substance: VENETOCLAX
     Indication: Chronic lymphocytic leukaemia
     Dosage: 400 MILLIGRAM
     Route: 048
     Dates: start: 20220204, end: 20220210
  11. VENCLEXTA [Suspect]
     Active Substance: VENETOCLAX
     Indication: Chronic lymphocytic leukaemia
     Dosage: 400 MILLIGRAM
     Route: 048
     Dates: start: 20220210, end: 20220307
  12. ALLOPURINOL [Concomitant]
     Active Substance: ALLOPURINOL
     Indication: Chemotherapy side effect prophylaxis
     Dosage: 100 MILLIGRAM
     Route: 048
     Dates: start: 20211127
  13. PROPRANOLOL HYDROCHLORIDE [Concomitant]
     Active Substance: PROPRANOLOL HYDROCHLORIDE
     Indication: Hypertension
     Route: 048
     Dates: start: 20211127, end: 20220115
  14. PROPRANOLOL HYDROCHLORIDE [Concomitant]
     Active Substance: PROPRANOLOL HYDROCHLORIDE
     Indication: Hypertension
     Dosage: 120 MILLIGRAM
     Route: 048
     Dates: start: 20211127, end: 20220115
  15. DIAZEPAM DAEWON [Concomitant]
     Indication: Tremor
     Route: 048
     Dates: start: 20211127
  16. DIAZEPAM DAEWON [Concomitant]
     Indication: Tremor
     Dosage: 2 MILLIGRAM
     Route: 048
     Dates: start: 20211127
  17. NORVASC [Concomitant]
     Active Substance: AMLODIPINE BESYLATE
     Indication: Hypertension
     Route: 048
     Dates: start: 20211127, end: 20220115
  18. NORVASC [Concomitant]
     Active Substance: AMLODIPINE BESYLATE
     Indication: Hypertension
     Dosage: 5 MILLIGRAM
     Route: 048
     Dates: start: 20211127, end: 20220115
  19. AVODART [Concomitant]
     Active Substance: DUTASTERIDE
     Indication: Benign prostatic hyperplasia
     Dosage: ORAL
     Route: 058
     Dates: start: 20211127
  20. AVODART [Concomitant]
     Active Substance: DUTASTERIDE
     Indication: Benign prostatic hyperplasia
     Dosage: ORAL,  0.5 MILLIGRAM
     Route: 058
     Dates: start: 20211127
  21. RABEPRAZOLE SODIUM [Concomitant]
     Active Substance: RABEPRAZOLE SODIUM
     Indication: Gastrooesophageal reflux disease
     Route: 048
     Dates: start: 20211127, end: 20211207
  22. RABEPRAZOLE SODIUM [Concomitant]
     Active Substance: RABEPRAZOLE SODIUM
     Indication: Gastrooesophageal reflux disease
     Dosage: 10 MILLIGRAM
     Route: 048
     Dates: start: 20211127, end: 20211207
  23. THRUPASS ODT [Concomitant]
     Indication: Benign prostatic hyperplasia
     Route: 060
     Dates: start: 20211127
  24. THRUPASS ODT [Concomitant]
     Indication: Benign prostatic hyperplasia
     Dosage: 8 MILLIGRAM
     Route: 060
     Dates: start: 20211127
  25. MINIRIN [Concomitant]
     Active Substance: DESMOPRESSIN ACETATE
     Indication: Benign prostatic hyperplasia
     Route: 048
     Dates: start: 20211127, end: 20211207
  26. MINIRIN [Concomitant]
     Active Substance: DESMOPRESSIN ACETATE
     Indication: Benign prostatic hyperplasia
     Route: 048
     Dates: start: 20211127, end: 20211207
  27. BENZYDAMINE HYDROCHLORIDE [Concomitant]
     Active Substance: BENZYDAMINE HYDROCHLORIDE
     Indication: Dental disorder prophylaxis
     Dates: start: 20211127
  28. BENZYDAMINE HYDROCHLORIDE [Concomitant]
     Active Substance: BENZYDAMINE HYDROCHLORIDE
     Indication: Dental disorder prophylaxis
     Dosage: 15 MILLILITER
     Dates: start: 20211127
  29. MABTHERA [Concomitant]
     Active Substance: RITUXIMAB
     Indication: Chronic lymphocytic leukaemia
     Route: 042
     Dates: start: 20220210, end: 20220210
  30. MABTHERA [Concomitant]
     Active Substance: RITUXIMAB
     Indication: Chronic lymphocytic leukaemia
     Dosage: INJ 50ML
     Route: 042
     Dates: start: 20220211, end: 20220211
  31. MABTHERA [Concomitant]
     Active Substance: RITUXIMAB
     Indication: Chronic lymphocytic leukaemia
     Dosage: 765 ML ,  INJ 50ML
     Route: 042
     Dates: start: 20220210, end: 20220210
  32. BARACLUDE [Concomitant]
     Active Substance: ENTECAVIR
     Indication: Infection prophylaxis
     Route: 048
     Dates: start: 20220113
  33. BARACLUDE [Concomitant]
     Active Substance: ENTECAVIR
     Indication: Infection prophylaxis
     Dosage: 0.5 MILLIGRAM
     Route: 048
     Dates: start: 20220113
  34. TACENOL 8HOURS ER [Concomitant]
     Indication: Chemotherapy side effect prophylaxis
     Route: 048
     Dates: start: 20220113, end: 20220113
  35. TACENOL 8HOURS ER [Concomitant]
     Indication: Chemotherapy side effect prophylaxis
     Dosage: 650 MILLIGRAM
     Route: 048
     Dates: start: 20220113, end: 20220113
  36. REBAMIPIDE [Concomitant]
     Active Substance: REBAMIPIDE
     Indication: Gastrooesophageal reflux disease
     Route: 048
     Dates: start: 20220113
  37. REBAMIPIDE [Concomitant]
     Active Substance: REBAMIPIDE
     Indication: Gastrooesophageal reflux disease
     Dosage: 300 MILLIGRAM
     Dates: start: 20220113
  38. CHLORPHENIRAMINE MALEATE [Concomitant]
     Active Substance: CHLORPHENIRAMINE MALEATE
     Indication: Chemotherapy side effect prophylaxis
     Dosage: 1 AMPOULE, HUONS INJ
     Route: 042
     Dates: start: 20220113, end: 20220113
  39. CHLORPHENIRAMINE MALEATE [Concomitant]
     Active Substance: CHLORPHENIRAMINE MALEATE
     Indication: Chemotherapy side effect prophylaxis
     Dosage: 1 AMPOULE, HUONS INJ
     Route: 042
     Dates: start: 20220113, end: 20220113
  40. MUCOTA [Concomitant]
     Indication: Gastrooesophageal reflux disease
     Route: 048
     Dates: start: 20220113
  41. INFLUENZA VIRUS VACCINE [Concomitant]
     Active Substance: INFLUENZA VIRUS VACCINE
     Indication: Product used for unknown indication
  42. TAZOPERAN [Concomitant]
     Indication: COVID-19 pneumonia
     Dosage: 1 VIAL,  INJ 4.5G
     Route: 042
     Dates: start: 20220307, end: 20220320
  43. TAZOPERAN [Concomitant]
     Indication: COVID-19 pneumonia
     Dosage: 1 VIAL,  INJ 4.5G
     Route: 042
     Dates: start: 20220307, end: 20220320
  44. TAZOPERAN [Concomitant]
     Indication: COVID-19 pneumonia
     Dosage: 1 VIAL,  INJ 4.5G
     Route: 042
     Dates: start: 20220307, end: 20220320
  45. TAZOPERAN [Concomitant]
     Indication: COVID-19 pneumonia
     Dosage: 1 VIAL,  INJ 4.5G
     Route: 042
     Dates: start: 20220307, end: 20220320
  46. CODEINE PHOSPHATE HANA [Concomitant]
     Indication: Pleural effusion
     Route: 048
     Dates: start: 20211127
  47. LEVOFLOXACIN [Concomitant]
     Active Substance: LEVOFLOXACIN
     Indication: COVID-19 pneumonia
     Dosage: 1 VIAL, INJ 750MG/150ML
     Route: 042
     Dates: start: 20220307, end: 20220320
  48. LEVOFLOXACIN [Concomitant]
     Active Substance: LEVOFLOXACIN
     Indication: COVID-19 pneumonia
     Dosage: 1 VIAL, INJ 750MG/150ML
     Route: 042
     Dates: start: 20220307, end: 20220320
  49. MAGMIL S [Concomitant]
     Indication: Chemotherapy
     Route: 048
     Dates: start: 20220211
  50. MAGMIL S [Concomitant]
     Indication: Chemotherapy
     Dosage: 750 MILLIGRAM
     Route: 048
     Dates: start: 20220211
  51. VEKLURY [Concomitant]
     Active Substance: REMDESIVIR
     Indication: COVID-19 pneumonia
     Route: 042
     Dates: start: 20220309, end: 20220310
  52. VEKLURY [Concomitant]
     Active Substance: REMDESIVIR
     Indication: COVID-19 pneumonia
     Route: 042
     Dates: start: 20220308, end: 20220308
  53. VEKLURY [Concomitant]
     Active Substance: REMDESIVIR
     Indication: COVID-19 pneumonia
     Dosage: 200 MILLIGRAM, INJ CONCENTRATE FOR SOLUTION FOR INFUSION
     Route: 042
     Dates: start: 20220308, end: 20220308
  54. VEKLURY [Concomitant]
     Active Substance: REMDESIVIR
     Indication: COVID-19 pneumonia
     Dosage: 100 MILLIGRAM, INJ CONCENTRATE FOR SOLUTION FOR INFUSION
     Route: 042
     Dates: start: 20220309, end: 20220310
  55. DEXAMETHASONE [Concomitant]
     Active Substance: DEXAMETHASONE
     Indication: Chemotherapy side effect prophylaxis
     Dosage: DOSAGE: 5 MG/ML
     Route: 042
     Dates: start: 20220113, end: 20220113
  56. DEXAMETHASONE [Concomitant]
     Active Substance: DEXAMETHASONE
     Indication: Chemotherapy side effect prophylaxis
     Dosage: 1 AMPOULE, CHOONGWAE INJ 5MG/ML
     Route: 042
     Dates: start: 20220113, end: 20220113
  57. SODIUM BICARBONATE DAIHAN [Concomitant]
     Indication: Chemotherapy side effect prophylaxis
     Dosage: 1 AMPOULE,  INJ 8.4% 20ML
     Route: 042
     Dates: start: 20220210, end: 20220210
  58. SODIUM BICARBONATE DAIHAN [Concomitant]
     Indication: Chemotherapy side effect prophylaxis
     Dosage: 1 AMPOULE,  INJ 8.4% 20ML
     Route: 042
     Dates: start: 20220210, end: 20220210
  59. DEXAMETHASONE DAEWON [Concomitant]
     Indication: Chemotherapy side effect prophylaxis
     Dosage: 1 AMPOULE, INJ
     Route: 042
     Dates: start: 20220210, end: 20220210
  60. DEXAMETHASONE DAEWON [Concomitant]
     Indication: Chemotherapy side effect prophylaxis
     Dosage: 6 MILLIGRAM, INJ
     Route: 042
     Dates: start: 20220308, end: 20220318

REACTIONS (1)
  - Pleural effusion [Not Recovered/Not Resolved]

NARRATIVE: CASE EVENT DATE: 20220110
